FAERS Safety Report 4541611-2 (Version None)
Quarter: 2004Q4

REPORT INFORMATION
  Report Type: 
  Country: None (occurrence: None)
  Receive Date: 20041230
  Receipt Date: 20041222
  Transmission Date: 20050328
  Serious: Yes (Other)
  Sender: FDA-Public Use
  Company Number: PHBS2004JP17230

PATIENT
  Age: 7 Year
  Sex: Male

DRUGS (4)
  1. METHOTREXATE [Concomitant]
     Dates: start: 20040101
  2. BUSULFAN [Concomitant]
     Dosage: 2 MG/KG/D
     Route: 065
     Dates: start: 20040101
  3. CYCLOPHOSPHAMIDE [Concomitant]
     Dosage: 30 MG/KG/D
     Route: 065
     Dates: start: 20040101
  4. CYCLOSPORINE [Suspect]
     Indication: BONE MARROW TRANSPLANT
     Route: 065
     Dates: start: 20040101

REACTIONS (2)
  - ADENOVIRAL HAEMORRHAGIC CYSTITIS [None]
  - BONE MARROW DEPRESSION [None]
